FAERS Safety Report 23196640 (Version 1)
Quarter: 2023Q4

REPORT INFORMATION
  Report Type: Spontaneous
  Country: US (occurrence: US)
  Receive Date: 20231117
  Receipt Date: 20231117
  Transmission Date: 20240109
  Serious: Yes (Hospitalization, Other)
  Sender: FDA-Public Use
  Company Number: US-SA-SAC20231114000820

PATIENT
  Age: 30 Year
  Sex: Male

DRUGS (1)
  1. FABRAZYME [Suspect]
     Active Substance: AGALSIDASE BETA
     Indication: Fabry^s disease
     Dosage: UNK UNK, QOW
     Route: 042
     Dates: end: 2023

REACTIONS (9)
  - Renal injury [Not Recovered/Not Resolved]
  - Blood urine present [Not Recovered/Not Resolved]
  - Graft complication [Not Recovered/Not Resolved]
  - Renal transplant failure [Unknown]
  - Hospitalisation [Unknown]
  - Renal transplant [Not Recovered/Not Resolved]
  - Sexually transmitted disease [Not Recovered/Not Resolved]
  - Globotriaosylsphingosine increased [Not Recovered/Not Resolved]
  - Drug specific antibody present [Not Recovered/Not Resolved]

NARRATIVE: CASE EVENT DATE: 20150101
